FAERS Safety Report 7617055-3 (Version None)
Quarter: 2011Q3

REPORT INFORMATION
  Report Type: 
  Country: None (occurrence: None)
  Receive Date: 20110718
  Receipt Date: 20110124
  Transmission Date: 20111222
  Serious: Yes (Hospitalization, Other)
  Sender: FDA-Public Use
  Company Number: US-BAYER-200833370NA

PATIENT
  Age: 60 Year
  Sex: Female
  Weight: 63.492 kg

DRUGS (28)
  1. TRASYLOL [Suspect]
     Dosage: UNK
     Route: 041
     Dates: start: 20041103, end: 20041103
  2. COUMADIN [Concomitant]
     Route: 048
  3. LASIX [Concomitant]
     Dosage: 80 MG
     Route: 042
     Dates: start: 20041103, end: 20041103
  4. LOPRESSOR [Concomitant]
     Dosage: 25-75 MG TWICE DAILY
     Route: 048
  5. EPINEPHRINE [Concomitant]
     Dosage: TITRATE DRIP
     Route: 041
     Dates: start: 20041103, end: 20041103
  6. TRASYLOL [Suspect]
     Indication: CARDIAC PACEMAKER INSERTION
     Dosage: 50 ML /HOUR
     Route: 041
     Dates: end: 20041103
  7. AMIODARONE HCL [Concomitant]
     Dosage: 200 MG, BID
     Route: 048
  8. ALDACTONE [Concomitant]
     Dosage: 1 MG, TID
     Route: 048
  9. CEFUROXIME [Concomitant]
     Dosage: 1.5 G, UNK
     Route: 042
     Dates: start: 20041103, end: 20041103
  10. RYTHMOL [Concomitant]
     Dosage: 225 MG, TID
     Route: 048
  11. VASOTEC [Concomitant]
     Dosage: 25 MG, BID
     Route: 048
  12. OSCAL [Concomitant]
  13. LANOXIN [Concomitant]
     Dosage: 0.125MG DAILY
     Route: 048
  14. KEFLEX [Concomitant]
     Route: 048
  15. SYNTHROID [Concomitant]
     Dosage: 175 MCG/24HR, UNK
     Route: 048
  16. LIPITOR [Concomitant]
     Dosage: 10 MG, QD
     Route: 048
  17. RED BLOOD CELLS [Concomitant]
     Dosage: 3 U, UNK
     Route: 042
     Dates: start: 20041103, end: 20041103
  18. FRESH FROZEN PLASMA [Concomitant]
     Dosage: 6 U, UNK
     Route: 042
     Dates: start: 20041103, end: 20041103
  19. TRASYLOL [Suspect]
     Indication: TRICUSPID VALVE REPLACEMENT
     Dosage: 400 ML LOADING DOSE
     Route: 042
  20. LANOXIN [Concomitant]
     Dosage: .25 MG, QD
     Route: 048
  21. HYDRALAZINE HCL [Concomitant]
  22. PROTAMINE SULFATE [Concomitant]
     Dosage: UNK
     Route: 042
     Dates: start: 20041103, end: 20041103
  23. TRASYLOL [Suspect]
     Indication: MITRAL VALVE REPAIR
     Dosage: 1 ML TEST DOSE
     Route: 042
     Dates: start: 20041103
  24. LASIX [Concomitant]
     Dosage: 40 MG, QD
     Route: 048
  25. POTASSIUM CHLORIDE [Concomitant]
  26. SOTALOL HCL [Concomitant]
     Dosage: 80 MG, BID
     Route: 048
  27. NITROGLYCERIN [Concomitant]
     Dosage: TITRATE DRIP
     Route: 042
     Dates: start: 20041103, end: 20041103
  28. MANNITOL [Concomitant]
     Dosage: 50 G, UNK
     Route: 042
     Dates: start: 20041103, end: 20041103

REACTIONS (8)
  - DEPRESSION [None]
  - ANHEDONIA [None]
  - INJURY [None]
  - FEAR [None]
  - PAIN [None]
  - ANXIETY [None]
  - RENAL FAILURE [None]
  - UNEVALUABLE EVENT [None]
